FAERS Safety Report 9595037 (Version 1)
Quarter: 2013Q4

REPORT INFORMATION
  Report Type: Spontaneous
  Country: US (occurrence: US)
  Receive Date: 20131004
  Receipt Date: 20131004
  Transmission Date: 20140711
  Serious: Yes (Other)
  Sender: FDA-Public Use
  Company Number: US-JNJFOC-20130917840

PATIENT
  Age: 3 Year
  Sex: Female

DRUGS (1)
  1. CONCERTA [Suspect]
     Indication: PRODUCT USED FOR UNKNOWN INDICATION
     Route: 048
     Dates: start: 20130925, end: 20130925

REACTIONS (3)
  - Hallucination [Not Recovered/Not Resolved]
  - Formication [Not Recovered/Not Resolved]
  - Accidental exposure to product by child [Unknown]
